FAERS Safety Report 24156757 (Version 1)
Quarter: 2024Q3

REPORT INFORMATION
  Report Type: Spontaneous
  Country: US (occurrence: None)
  Receive Date: 20240730
  Receipt Date: 20240730
  Transmission Date: 20241017
  Serious: Yes (Hospitalization)
  Sender: Public
  Company Number: None

PATIENT
  Sex: Male

DRUGS (3)
  1. TADALAFIL [Suspect]
     Active Substance: TADALAFIL
     Indication: Pulmonary arterial hypertension
     Dosage: FREQUENCY : DAILY;?
     Route: 048
     Dates: start: 202201
  2. TYVASO DPI MAINT KIT PWD [Concomitant]
  3. OPSUMIT [Concomitant]

REACTIONS (3)
  - Cerebral haemorrhage [None]
  - Cerebrovascular accident [None]
  - Hypotonia [None]
